FAERS Safety Report 16432124 (Version 1)
Quarter: 2019Q3

REPORT INFORMATION
  Report Type: Spontaneous
  Country: US (occurrence: US)
  Receive Date: 20190614
  Receipt Date: 20190614
  Transmission Date: 20191004
  Serious: No
  Sender: FDA-Public Use
  Company Number: None

PATIENT
  Sex: Female

DRUGS (2)
  1. JANUVIA 25MG [Suspect]
     Active Substance: SITAGLIPTIN PHOSPHATE
  2. JANUVIA [Suspect]
     Active Substance: SITAGLIPTIN PHOSPHATE

REACTIONS (6)
  - Oropharyngeal pain [None]
  - Nausea [None]
  - Muscle spasms [None]
  - Diarrhoea [None]
  - Abdominal pain upper [None]
  - Headache [None]
